FAERS Safety Report 16330456 (Version 1)
Quarter: 2019Q2

REPORT INFORMATION
  Report Type: Spontaneous
  Country: IT (occurrence: IT)
  Receive Date: 20190520
  Receipt Date: 20190520
  Transmission Date: 20190711
  Serious: Yes (Disabling)
  Sender: FDA-Public Use
  Company Number: IT-BAYER-2019-092969

PATIENT
  Age: 29 Year
  Sex: Female
  Weight: 52 kg

DRUGS (2)
  1. CIPROXIN [Suspect]
     Active Substance: CIPROFLOXACIN
     Dosage: UNK
  2. UNIDROX [Suspect]
     Active Substance: PRULIFLOXACIN
     Dosage: UNK

REACTIONS (3)
  - Vulvovaginal pain [Recovering/Resolving]
  - Pelvic pain [Recovering/Resolving]
  - Genital burning sensation [Recovering/Resolving]

NARRATIVE: CASE EVENT DATE: 20160102
